FAERS Safety Report 7296397-8 (Version None)
Quarter: 2011Q1

REPORT INFORMATION
  Report Type: 
  Country: None (occurrence: None)
  Receive Date: 20110216
  Receipt Date: 20110211
  Transmission Date: 20110831
  Serious: Yes (Death)
  Sender: FDA-Public Use
  Company Number: US-JNJCH-2011003758

PATIENT
  Age: 74 Year
  Sex: Male

DRUGS (3)
  1. WARFARIN SODIUM [Suspect]
     Indication: THROMBOSIS PROPHYLAXIS
     Dosage: TEXT:UNKNOWN
     Route: 065
  2. ASPIRIN [Suspect]
     Indication: THROMBOSIS PROPHYLAXIS
     Dosage: TEXT:UNKNOWN
     Route: 065
  3. CEFTAZIDIME [Suspect]
     Indication: BACTERAEMIA
     Dosage: TEXT:UNKNOWN
     Route: 065

REACTIONS (2)
  - BACTERAEMIA [None]
  - VON WILLEBRAND'S FACTOR ACTIVITY ABNORMAL [None]
